FAERS Safety Report 24112447 (Version 1)
Quarter: 2024Q3

REPORT INFORMATION
  Report Type: Report from Study
  Country: US (occurrence: None)
  Receive Date: 20240719
  Receipt Date: 20240719
  Transmission Date: 20241016
  Serious: Yes (Other)
  Sender: ASTRAZENECA
  Company Number: 2020SE31314

PATIENT
  Age: 85 Year
  Sex: Male

DRUGS (13)
  1. CALQUENCE [Suspect]
     Active Substance: ACALABRUTINIB
     Indication: Chronic lymphocytic leukaemia
     Route: 048
     Dates: start: 20200218
  2. POTASSIUM IODIDE [Concomitant]
     Active Substance: POTASSIUM IODIDE
  3. ALLOPURINOL [Concomitant]
     Active Substance: ALLOPURINOL
  4. AMIODARONE HYDROCHLORIDE [Concomitant]
     Active Substance: AMIODARONE HYDROCHLORIDE
  5. ELIQUIS [Concomitant]
     Active Substance: APIXABAN
  6. BETAMETHASONE [Concomitant]
     Active Substance: BETAMETHASONE\BETAMETHASONE DIPROPIONATE
  7. CALCIUM CARBONATE [Concomitant]
     Active Substance: CALCIUM CARBONATE
  8. VITAMIN D3 [Concomitant]
     Active Substance: CHOLECALCIFEROL
  9. FUROSEMIDE [Concomitant]
     Active Substance: FUROSEMIDE
  10. ISOSORBIDE [Concomitant]
     Active Substance: ISOSORBIDE
  11. LOVASTATIN [Concomitant]
     Active Substance: LOVASTATIN
  12. LEVOTHYROXINE SODIUM [Concomitant]
     Active Substance: LEVOTHYROXINE SODIUM
  13. NITROGLYCERIN [Concomitant]
     Active Substance: NITROGLYCERIN

REACTIONS (6)
  - Arrhythmia [Unknown]
  - Arthritis [Unknown]
  - Asthenia [Unknown]
  - Headache [Unknown]
  - Arthralgia [Unknown]
  - Myalgia [Unknown]
